FAERS Safety Report 8953270 (Version 1)
Quarter: 2012Q4

REPORT INFORMATION
  Report Type: 
  Country: US (occurrence: US)
  Receive Date: 20121206
  Receipt Date: 20121206
  Transmission Date: 20130627
  Serious: Yes (Other)
  Sender: FDA-Public Use
  Company Number: US-SANOFI-AVENTIS-2012SA088657

PATIENT
  Sex: Female

DRUGS (2)
  1. LANTUS [Suspect]
     Dosage: Dose:20 unit(s)
     Route: 058
  2. NOVOLOG [Suspect]
     Route: 065

REACTIONS (1)
  - Renal failure [Unknown]
